FAERS Safety Report 23388996 (Version 12)
Quarter: 2025Q3

REPORT INFORMATION
  Report Type: Report from Study
  Country: EU (occurrence: EU)
  Receive Date: 20240110
  Receipt Date: 20250926
  Transmission Date: 20251020
  Serious: Yes (Death, Hospitalization, Other)
  Sender: MYLAN
  Company Number: EU-MYLANLABS-2022M1084015

PATIENT
  Sex: Female

DRUGS (136)
  1. METHOTREXATE [Suspect]
     Active Substance: METHOTREXATE
     Indication: Rheumatoid arthritis
     Dosage: 15 MILLIGRAM, QW (15 MG/W)
     Dates: end: 202405
  2. METHOTREXATE [Suspect]
     Active Substance: METHOTREXATE
     Dosage: 15 MILLIGRAM, QW (15 MG/W)
     Dates: end: 202405
  3. METHOTREXATE [Suspect]
     Active Substance: METHOTREXATE
     Dosage: 15 MILLIGRAM, QW (15 MG/W)
     Route: 065
     Dates: end: 202405
  4. METHOTREXATE [Suspect]
     Active Substance: METHOTREXATE
     Dosage: 15 MILLIGRAM, QW (15 MG/W)
     Route: 065
     Dates: end: 202405
  5. METHOTREXATE [Suspect]
     Active Substance: METHOTREXATE
  6. METHOTREXATE [Suspect]
     Active Substance: METHOTREXATE
  7. METHOTREXATE [Suspect]
     Active Substance: METHOTREXATE
     Route: 065
  8. METHOTREXATE [Suspect]
     Active Substance: METHOTREXATE
     Route: 065
  9. ERELZI [Suspect]
     Active Substance: ETANERCEPT-SZZS
     Indication: Rheumatoid arthritis
     Dosage: 50 MILLIGRAM, QW (50 MG EVERY 7 DAYS) (START DATE: JUN-2022)
  10. ERELZI [Suspect]
     Active Substance: ETANERCEPT-SZZS
     Dosage: 50 MILLIGRAM, QW (50 MG EVERY 7 DAYS) (START DATE: JUN-2022)
     Route: 065
  11. ERELZI [Suspect]
     Active Substance: ETANERCEPT-SZZS
     Dosage: 50 MILLIGRAM, QW (50 MG EVERY 7 DAYS) (START DATE: JUN-2022)
     Route: 065
  12. ERELZI [Suspect]
     Active Substance: ETANERCEPT-SZZS
     Dosage: 50 MILLIGRAM, QW (50 MG EVERY 7 DAYS) (START DATE: JUN-2022)
  13. CHOLECALCIFEROL [Concomitant]
     Active Substance: CHOLECALCIFEROL
     Indication: Product used for unknown indication
  14. CHOLECALCIFEROL [Concomitant]
     Active Substance: CHOLECALCIFEROL
     Route: 065
  15. CHOLECALCIFEROL [Concomitant]
     Active Substance: CHOLECALCIFEROL
     Route: 065
  16. CHOLECALCIFEROL [Concomitant]
     Active Substance: CHOLECALCIFEROL
  17. XARELTO [Concomitant]
     Active Substance: RIVAROXABAN
     Indication: Product used for unknown indication
     Route: 065
  18. XARELTO [Concomitant]
     Active Substance: RIVAROXABAN
  19. XARELTO [Concomitant]
     Active Substance: RIVAROXABAN
  20. XARELTO [Concomitant]
     Active Substance: RIVAROXABAN
     Route: 065
  21. XARELTO [Concomitant]
     Active Substance: RIVAROXABAN
     Route: 065
  22. XARELTO [Concomitant]
     Active Substance: RIVAROXABAN
  23. XARELTO [Concomitant]
     Active Substance: RIVAROXABAN
  24. XARELTO [Concomitant]
     Active Substance: RIVAROXABAN
     Route: 065
  25. PANTOPRAZOLE [Concomitant]
     Active Substance: PANTOPRAZOLE
     Indication: Product used for unknown indication
  26. PANTOPRAZOLE [Concomitant]
     Active Substance: PANTOPRAZOLE
     Route: 065
  27. PANTOPRAZOLE [Concomitant]
     Active Substance: PANTOPRAZOLE
     Route: 065
  28. PANTOPRAZOLE [Concomitant]
     Active Substance: PANTOPRAZOLE
  29. CANDESARTAN CILEXETIL\HYDROCHLOROTHIAZIDE [Concomitant]
     Active Substance: CANDESARTAN CILEXETIL\HYDROCHLOROTHIAZIDE
     Indication: Product used for unknown indication
  30. CANDESARTAN CILEXETIL\HYDROCHLOROTHIAZIDE [Concomitant]
     Active Substance: CANDESARTAN CILEXETIL\HYDROCHLOROTHIAZIDE
     Route: 065
  31. CANDESARTAN CILEXETIL\HYDROCHLOROTHIAZIDE [Concomitant]
     Active Substance: CANDESARTAN CILEXETIL\HYDROCHLOROTHIAZIDE
     Route: 065
  32. CANDESARTAN CILEXETIL\HYDROCHLOROTHIAZIDE [Concomitant]
     Active Substance: CANDESARTAN CILEXETIL\HYDROCHLOROTHIAZIDE
  33. BISOPROLOL [Concomitant]
     Active Substance: BISOPROLOL
     Indication: Product used for unknown indication
  34. BISOPROLOL [Concomitant]
     Active Substance: BISOPROLOL
     Route: 065
  35. BISOPROLOL [Concomitant]
     Active Substance: BISOPROLOL
     Route: 065
  36. BISOPROLOL [Concomitant]
     Active Substance: BISOPROLOL
  37. QUETIAPINE [Concomitant]
     Active Substance: QUETIAPINE
     Indication: Product used for unknown indication
     Route: 065
  38. QUETIAPINE [Concomitant]
     Active Substance: QUETIAPINE
  39. QUETIAPINE [Concomitant]
     Active Substance: QUETIAPINE
  40. QUETIAPINE [Concomitant]
     Active Substance: QUETIAPINE
     Route: 065
  41. QUETIAPINE [Concomitant]
     Active Substance: QUETIAPINE
     Route: 065
  42. QUETIAPINE [Concomitant]
     Active Substance: QUETIAPINE
  43. QUETIAPINE [Concomitant]
     Active Substance: QUETIAPINE
  44. QUETIAPINE [Concomitant]
     Active Substance: QUETIAPINE
     Route: 065
  45. FOLIC ACID [Concomitant]
     Active Substance: FOLIC ACID
     Indication: Product used for unknown indication
  46. FOLIC ACID [Concomitant]
     Active Substance: FOLIC ACID
     Route: 065
  47. FOLIC ACID [Concomitant]
     Active Substance: FOLIC ACID
     Route: 065
  48. FOLIC ACID [Concomitant]
     Active Substance: FOLIC ACID
  49. MIRTAZAPINE [Concomitant]
     Active Substance: MIRTAZAPINE
     Indication: Product used for unknown indication
  50. MIRTAZAPINE [Concomitant]
     Active Substance: MIRTAZAPINE
     Route: 065
  51. MIRTAZAPINE [Concomitant]
     Active Substance: MIRTAZAPINE
     Route: 065
  52. MIRTAZAPINE [Concomitant]
     Active Substance: MIRTAZAPINE
  53. Schwedenbitter [Concomitant]
     Indication: Product used for unknown indication
  54. Schwedenbitter [Concomitant]
     Route: 065
  55. Schwedenbitter [Concomitant]
     Route: 065
  56. Schwedenbitter [Concomitant]
  57. AMLODIPINE [Concomitant]
     Active Substance: AMLODIPINE BESYLATE
     Indication: Product used for unknown indication
  58. AMLODIPINE [Concomitant]
     Active Substance: AMLODIPINE BESYLATE
     Route: 065
  59. AMLODIPINE [Concomitant]
     Active Substance: AMLODIPINE BESYLATE
     Route: 065
  60. AMLODIPINE [Concomitant]
     Active Substance: AMLODIPINE BESYLATE
  61. CARBIMAZOLE [Concomitant]
     Active Substance: CARBIMAZOLE
     Indication: Product used for unknown indication
  62. CARBIMAZOLE [Concomitant]
     Active Substance: CARBIMAZOLE
     Route: 065
  63. CARBIMAZOLE [Concomitant]
     Active Substance: CARBIMAZOLE
     Route: 065
  64. CARBIMAZOLE [Concomitant]
     Active Substance: CARBIMAZOLE
  65. MELATONIN [Concomitant]
     Active Substance: MELATONIN
     Indication: Product used for unknown indication
  66. MELATONIN [Concomitant]
     Active Substance: MELATONIN
     Route: 065
  67. MELATONIN [Concomitant]
     Active Substance: MELATONIN
     Route: 065
  68. MELATONIN [Concomitant]
     Active Substance: MELATONIN
  69. LACTULOSE [Concomitant]
     Active Substance: LACTULOSE
     Indication: Product used for unknown indication
  70. LACTULOSE [Concomitant]
     Active Substance: LACTULOSE
     Route: 065
  71. LACTULOSE [Concomitant]
     Active Substance: LACTULOSE
     Route: 065
  72. LACTULOSE [Concomitant]
     Active Substance: LACTULOSE
  73. MOVICOL [Concomitant]
     Active Substance: POLYETHYLENE GLYCOL 3350\POTASSIUM CHLORIDE\SODIUM BICARBONATE\SODIUM CHLORIDE
     Indication: Product used for unknown indication
  74. MOVICOL [Concomitant]
     Active Substance: POLYETHYLENE GLYCOL 3350\POTASSIUM CHLORIDE\SODIUM BICARBONATE\SODIUM CHLORIDE
     Route: 065
  75. MOVICOL [Concomitant]
     Active Substance: POLYETHYLENE GLYCOL 3350\POTASSIUM CHLORIDE\SODIUM BICARBONATE\SODIUM CHLORIDE
     Route: 065
  76. MOVICOL [Concomitant]
     Active Substance: POLYETHYLENE GLYCOL 3350\POTASSIUM CHLORIDE\SODIUM BICARBONATE\SODIUM CHLORIDE
  77. CANDESARTAN CILEXETIL\HYDROCHLOROTHIAZIDE [Concomitant]
     Active Substance: CANDESARTAN CILEXETIL\HYDROCHLOROTHIAZIDE
     Indication: Product used for unknown indication
  78. CANDESARTAN CILEXETIL\HYDROCHLOROTHIAZIDE [Concomitant]
     Active Substance: CANDESARTAN CILEXETIL\HYDROCHLOROTHIAZIDE
     Route: 065
  79. CANDESARTAN CILEXETIL\HYDROCHLOROTHIAZIDE [Concomitant]
     Active Substance: CANDESARTAN CILEXETIL\HYDROCHLOROTHIAZIDE
     Route: 065
  80. CANDESARTAN CILEXETIL\HYDROCHLOROTHIAZIDE [Concomitant]
     Active Substance: CANDESARTAN CILEXETIL\HYDROCHLOROTHIAZIDE
  81. JARDIANCE [Concomitant]
     Active Substance: EMPAGLIFLOZIN
     Indication: Product used for unknown indication
  82. JARDIANCE [Concomitant]
     Active Substance: EMPAGLIFLOZIN
     Route: 065
  83. JARDIANCE [Concomitant]
     Active Substance: EMPAGLIFLOZIN
     Route: 065
  84. JARDIANCE [Concomitant]
     Active Substance: EMPAGLIFLOZIN
  85. TORSEMIDE [Concomitant]
     Active Substance: TORSEMIDE
     Indication: Product used for unknown indication
  86. TORSEMIDE [Concomitant]
     Active Substance: TORSEMIDE
     Route: 065
  87. TORSEMIDE [Concomitant]
     Active Substance: TORSEMIDE
     Route: 065
  88. TORSEMIDE [Concomitant]
     Active Substance: TORSEMIDE
  89. HYDROMORPHONE [Concomitant]
     Active Substance: HYDROMORPHONE
     Indication: Product used for unknown indication
  90. HYDROMORPHONE [Concomitant]
     Active Substance: HYDROMORPHONE
     Route: 065
  91. HYDROMORPHONE [Concomitant]
     Active Substance: HYDROMORPHONE
     Route: 065
  92. HYDROMORPHONE [Concomitant]
     Active Substance: HYDROMORPHONE
  93. METAMIZOLE [Concomitant]
     Active Substance: METAMIZOLE
     Indication: Product used for unknown indication
  94. METAMIZOLE [Concomitant]
     Active Substance: METAMIZOLE
     Route: 065
  95. METAMIZOLE [Concomitant]
     Active Substance: METAMIZOLE
     Route: 065
  96. METAMIZOLE [Concomitant]
     Active Substance: METAMIZOLE
  97. Neuralgin [Concomitant]
     Indication: Product used for unknown indication
  98. Neuralgin [Concomitant]
     Route: 065
  99. Neuralgin [Concomitant]
     Route: 065
  100. Neuralgin [Concomitant]
  101. OLUMIANT [Concomitant]
     Active Substance: BARICITINIB
     Indication: Product used for unknown indication
  102. OLUMIANT [Concomitant]
     Active Substance: BARICITINIB
  103. OLUMIANT [Concomitant]
     Active Substance: BARICITINIB
     Route: 065
  104. OLUMIANT [Concomitant]
     Active Substance: BARICITINIB
     Route: 065
  105. OLUMIANT [Concomitant]
     Active Substance: BARICITINIB
  106. OLUMIANT [Concomitant]
     Active Substance: BARICITINIB
  107. OLUMIANT [Concomitant]
     Active Substance: BARICITINIB
     Route: 065
  108. OLUMIANT [Concomitant]
     Active Substance: BARICITINIB
     Route: 065
  109. ALENDRONIC ACID [Concomitant]
     Active Substance: ALENDRONIC ACID
     Indication: Product used for unknown indication
     Dosage: 70 MILLIGRAM, QW
  110. ALENDRONIC ACID [Concomitant]
     Active Substance: ALENDRONIC ACID
     Dosage: 70 MILLIGRAM, QW
     Route: 065
  111. ALENDRONIC ACID [Concomitant]
     Active Substance: ALENDRONIC ACID
     Dosage: 70 MILLIGRAM, QW
     Route: 065
  112. ALENDRONIC ACID [Concomitant]
     Active Substance: ALENDRONIC ACID
     Dosage: 70 MILLIGRAM, QW
  113. PREDNISOLONE [Concomitant]
     Active Substance: PREDNISOLONE
     Indication: Product used for unknown indication
  114. PREDNISOLONE [Concomitant]
     Active Substance: PREDNISOLONE
     Route: 065
  115. PREDNISOLONE [Concomitant]
     Active Substance: PREDNISOLONE
     Route: 065
  116. PREDNISOLONE [Concomitant]
     Active Substance: PREDNISOLONE
  117. Spiro [Concomitant]
     Indication: Product used for unknown indication
  118. Spiro [Concomitant]
     Route: 065
  119. Spiro [Concomitant]
     Route: 065
  120. Spiro [Concomitant]
  121. ALLOPURINOL [Concomitant]
     Active Substance: ALLOPURINOL
     Indication: Product used for unknown indication
  122. ALLOPURINOL [Concomitant]
     Active Substance: ALLOPURINOL
     Route: 065
  123. ALLOPURINOL [Concomitant]
     Active Substance: ALLOPURINOL
     Route: 065
  124. ALLOPURINOL [Concomitant]
     Active Substance: ALLOPURINOL
  125. FERROUS GLUCONATE [Concomitant]
     Active Substance: FERROUS GLUCONATE
     Indication: Product used for unknown indication
  126. FERROUS GLUCONATE [Concomitant]
     Active Substance: FERROUS GLUCONATE
     Route: 065
  127. FERROUS GLUCONATE [Concomitant]
     Active Substance: FERROUS GLUCONATE
     Route: 065
  128. FERROUS GLUCONATE [Concomitant]
     Active Substance: FERROUS GLUCONATE
  129. CHOLECALCIFEROL [Concomitant]
     Active Substance: CHOLECALCIFEROL
     Indication: Product used for unknown indication
  130. CHOLECALCIFEROL [Concomitant]
     Active Substance: CHOLECALCIFEROL
     Route: 065
  131. CHOLECALCIFEROL [Concomitant]
     Active Substance: CHOLECALCIFEROL
     Route: 065
  132. CHOLECALCIFEROL [Concomitant]
     Active Substance: CHOLECALCIFEROL
  133. DIGITOXIN [Concomitant]
     Active Substance: DIGITOXIN
     Indication: Product used for unknown indication
  134. DIGITOXIN [Concomitant]
     Active Substance: DIGITOXIN
     Route: 065
  135. DIGITOXIN [Concomitant]
     Active Substance: DIGITOXIN
     Route: 065
  136. DIGITOXIN [Concomitant]
     Active Substance: DIGITOXIN

REACTIONS (15)
  - Cardiorenal syndrome [Fatal]
  - Cardiac failure [Fatal]
  - Atrial fibrillation [Recovered/Resolved]
  - Cardiac failure acute [Recovered/Resolved]
  - Sciatica [Recovered/Resolved]
  - Back pain [Not Recovered/Not Resolved]
  - Bradyarrhythmia [Recovered/Resolved]
  - Tuberculosis [Unknown]
  - Klebsiella bacteraemia [Recovered/Resolved]
  - Pancytopenia [Recovered/Resolved]
  - Cardiac discomfort [Recovered/Resolved]
  - Dyspnoea exertional [Not Recovered/Not Resolved]
  - Osteoporosis [Not Recovered/Not Resolved]
  - Sleep disorder [Not Recovered/Not Resolved]
  - Iron deficiency anaemia [Not Recovered/Not Resolved]

NARRATIVE: CASE EVENT DATE: 20200101
